FAERS Safety Report 5316463-3 (Version None)
Quarter: 2007Q2

REPORT INFORMATION
  Report Type: 
  Country: None (occurrence: None)
  Receive Date: 20070504
  Receipt Date: 20070423
  Transmission Date: 20071010
  Serious: Yes (Other)
  Sender: FDA-Public Use
  Company Number: PHEH2007US06499

PATIENT
  Age: 67 Year
  Sex: Female

DRUGS (1)
  1. ZELNORM [Suspect]
     Indication: IRRITABLE BOWEL SYNDROME
     Dosage: 6 MG, BID
     Route: 048
     Dates: start: 20070314, end: 20070420

REACTIONS (6)
  - AMNESIA [None]
  - CONFUSIONAL STATE [None]
  - EYE MOVEMENT DISORDER [None]
  - MEMORY IMPAIRMENT [None]
  - READING DISORDER [None]
  - TRANSIENT ISCHAEMIC ATTACK [None]
